FAERS Safety Report 6493023-2 (Version None)
Quarter: 2009Q4

REPORT INFORMATION
  Report Type: 
  Country: None (occurrence: None)
  Receive Date: 20091214
  Receipt Date: 20091204
  Transmission Date: 20100525
  Serious: Yes (Hospitalization)
  Sender: FDA-Public Use
  Company Number: GXKR2009GB13145

PATIENT
  Age: 7 Year
  Sex: Female

DRUGS (1)
  1. DICLOFENAC (NGX) [Suspect]
     Indication: PAIN
     Dosage: 9 DF IN 4 DAYS

REACTIONS (1)
  - STAPHYLOCOCCAL INFECTION [None]
